FAERS Safety Report 7716688-3 (Version None)
Quarter: 2011Q3

REPORT INFORMATION
  Report Type: 
  Country: None (occurrence: None)
  Receive Date: 20110829
  Receipt Date: 20110822
  Transmission Date: 20111222
  Serious: Yes (Other)
  Sender: FDA-Public Use
  Company Number: JP-JNJFOC-20110700621

PATIENT
  Sex: Female

DRUGS (6)
  1. REMICADE [Suspect]
     Indication: CROHN'S DISEASE
     Dosage: 28TH DOSE
     Route: 042
     Dates: start: 20110528
  2. PENTASA [Concomitant]
     Route: 048
     Dates: start: 20061001
  3. CLEMASTINE FUMARATE [Concomitant]
     Indication: PROPHYLAXIS
     Route: 048
     Dates: start: 20061001
  4. REMICADE [Suspect]
     Dosage: 1ST DOSE
     Route: 042
     Dates: start: 20061005
  5. REMICADE [Suspect]
     Dosage: 27TH DOSE OF INFLIXIMAB, RECOMBINANT
     Route: 042
     Dates: start: 20110205
  6. ACETAMINOPHEN [Concomitant]
     Indication: PROPHYLAXIS
     Dosage: 600DF
     Route: 048
     Dates: start: 20061001

REACTIONS (1)
  - PLATELET AGGREGATION [None]
